FAERS Safety Report 11494452 (Version 1)
Quarter: 2015Q3

REPORT INFORMATION
  Report Type: Spontaneous
  Country: US (occurrence: None)
  Receive Date: 20150910
  Receipt Date: 20150910
  Transmission Date: 20151125
  Serious: Yes (Life-Threatening)
  Sender: FDA-Public Use
  Company Number: None

PATIENT
  Age: 15 Year
  Sex: Female
  Weight: 58.97 kg

DRUGS (5)
  1. VISTERIL [Concomitant]
  2. NEXPLANON [Suspect]
     Active Substance: ETONOGESTREL
     Indication: MENSTRUAL CYCLE MANAGEMENT
     Dates: start: 20150619, end: 20150908
  3. IRON [Concomitant]
     Active Substance: IRON
  4. NEXPLANON [Concomitant]
     Active Substance: ETONOGESTREL
  5. NEXPLANON [Suspect]
     Active Substance: ETONOGESTREL
     Indication: ANAEMIA
     Dates: start: 20150619, end: 20150908

REACTIONS (3)
  - Vomiting [None]
  - Alopecia [None]
  - Weight decreased [None]

NARRATIVE: CASE EVENT DATE: 20150907
